FAERS Safety Report 7359479-8 (Version None)
Quarter: 2011Q1

REPORT INFORMATION
  Report Type: 
  Country: None (occurrence: None)
  Receive Date: 20110317
  Receipt Date: 20091001
  Transmission Date: 20110831
  Serious: No
  Sender: FDA-Public Use
  Company Number: US-PFIZER INC-2009277139

PATIENT
  Age: 76 Year
  Sex: Female

DRUGS (3)
  1. AMLODIPINE BESYLATE [Suspect]
     Dosage: UNK
  2. ALENDRONATE SODIUM [Suspect]
     Indication: OSTEOPENIA
     Dosage: 1 TABLET, 1/WEEK
     Route: 048
     Dates: start: 20090901
  3. ALENDRONATE SODIUM [Suspect]
     Dosage: 1 TABLET, 1/WEEK
     Route: 048
     Dates: start: 20081101, end: 20090901

REACTIONS (3)
  - LIP SWELLING [None]
  - OEDEMA PERIPHERAL [None]
  - PARAESTHESIA [None]
